FAERS Safety Report 9396796 (Version 1)
Quarter: 2013Q3

REPORT INFORMATION
  Report Type: Spontaneous
  Country: US (occurrence: US)
  Receive Date: 20130712
  Receipt Date: 20130712
  Transmission Date: 20140515
  Serious: Yes (Hospitalization)
  Sender: FDA-Public Use
  Company Number: US-BRISTOL-MYERS SQUIBB COMPANY-19074004

PATIENT
  Age: 53 Year
  Sex: Male

DRUGS (3)
  1. BYETTA [Suspect]
  2. NOVOLOG [Suspect]
  3. LANTUS [Suspect]

REACTIONS (5)
  - Nephrolithiasis [Unknown]
  - Nausea [Unknown]
  - Vomiting [Unknown]
  - Blood glucose decreased [Unknown]
  - Weight decreased [Unknown]
